FAERS Safety Report 23091313 (Version 2)
Quarter: 2023Q4

REPORT INFORMATION
  Report Type: Spontaneous
  Country: FR (occurrence: None)
  Receive Date: 20231020
  Receipt Date: 20231201
  Transmission Date: 20240110
  Serious: Yes (Hospitalization)
  Sender: FDA-Public Use
  Company Number: 2023A236620

PATIENT
  Age: 64 Year
  Sex: Female

DRUGS (8)
  1. ROSUVASTATIN [Suspect]
     Active Substance: ROSUVASTATIN
     Indication: Dyslipidaemia
     Dosage: 20 MILLIGRAM, 1/DAY
     Route: 048
     Dates: start: 202306, end: 20231005
  2. EZETIMIBE [Concomitant]
     Active Substance: EZETIMIBE
     Indication: Dyslipidaemia
     Dosage: 10 MILLIGRAM, 1/DAY
     Route: 048
     Dates: start: 2022, end: 20231005
  3. LEVOTHYROXINE SODIUM [Concomitant]
     Active Substance: LEVOTHYROXINE SODIUM
     Indication: Hypothyroidism
     Dosage: 150 MICROGRAM, 1/DAY
     Route: 048
     Dates: start: 2022
  4. KARDEGIC [Concomitant]
     Active Substance: ASPIRIN DL-LYSINE
     Indication: Ischaemic heart disease prophylaxis
     Dosage: 75 MILLIGRAM, 1/DAY
     Route: 048
     Dates: start: 2022
  5. LANSOPRAZOLE [Concomitant]
     Active Substance: LANSOPRAZOLE
     Indication: Gastrooesophageal reflux disease
     Dosage: 15 MILLIGRAM, 1/DAY
     Route: 048
     Dates: start: 2022, end: 20231010
  6. BISOPROLOL [Concomitant]
     Active Substance: BISOPROLOL\BISOPROLOL FUMARATE
     Indication: Ischaemic heart disease prophylaxis
     Dosage: 2.5 MILLIGRAM, 1/DAY
     Route: 048
     Dates: start: 2022
  7. MELATONIN [Concomitant]
     Active Substance: MELATONIN
     Indication: Insomnia
     Dosage: 1 MILLIGRAM, 1/DAY
     Route: 048
     Dates: start: 202206, end: 20231010
  8. RAMIPRIL [Concomitant]
     Active Substance: RAMIPRIL
     Indication: Ischaemic heart disease prophylaxis
     Dosage: 1.25 MILLIGRAM, 1/DAY
     Route: 048
     Dates: start: 2022

REACTIONS (2)
  - Autoimmune hepatitis [Recovering/Resolving]
  - Hepatocellular injury [Recovering/Resolving]

NARRATIVE: CASE EVENT DATE: 20230929
